FAERS Safety Report 23322073 (Version 1)
Quarter: 2023Q4

REPORT INFORMATION
  Report Type: Spontaneous
  Country: GB (occurrence: GB)
  Receive Date: 20231220
  Receipt Date: 20231220
  Transmission Date: 20240110
  Serious: Yes (Other)
  Sender: FDA-Public Use
  Company Number: GB-VERTEX PHARMACEUTICALS-2023-018813

PATIENT
  Age: 35 Year
  Sex: Male

DRUGS (2)
  1. TRIKAFTA [Suspect]
     Active Substance: ELEXACAFTOR\IVACAFTOR\TEZACAFTOR
     Indication: Cystic fibrosis
     Dosage: UNK
     Route: 048
     Dates: start: 2020
  2. TRIKAFTA [Suspect]
     Active Substance: ELEXACAFTOR\IVACAFTOR\TEZACAFTOR
     Dosage: HALF DOSE
     Route: 048

REACTIONS (7)
  - Spinal fracture [Unknown]
  - Generalised tonic-clonic seizure [Unknown]
  - Amnesia [Unknown]
  - Dehydration [Unknown]
  - Electrolyte imbalance [Unknown]
  - Aspiration [Unknown]
  - Lung abscess [Unknown]

NARRATIVE: CASE EVENT DATE: 20200101
